FAERS Safety Report 9220679 (Version 1)
Quarter: 2013Q2

REPORT INFORMATION
  Report Type: Spontaneous
  Country: US (occurrence: US)
  Receive Date: 20130409
  Receipt Date: 20130409
  Transmission Date: 20140414
  Serious: Yes (Other)
  Sender: FDA-Public Use
  Company Number: CHPA2013US005907

PATIENT
  Age: 79 Year
  Sex: Female

DRUGS (7)
  1. GAS-X [Suspect]
     Indication: COLITIS
     Dosage: 1 DF MORNING, 1 DF BEDTIME
     Route: 048
     Dates: start: 2007
  2. CYMBALTA [Concomitant]
     Indication: PAIN
  3. CYMBALTA [Concomitant]
     Indication: DEPRESSION
  4. ADVAIR [Concomitant]
     Indication: CHRONIC OBSTRUCTIVE PULMONARY DISEASE
  5. DIOVAN [Concomitant]
  6. ATENOLOL [Concomitant]
  7. COMBIVENT [Concomitant]

REACTIONS (4)
  - Colitis [Unknown]
  - Diarrhoea [Unknown]
  - Off label use [Unknown]
  - Therapeutic response unexpected [Unknown]
